FAERS Safety Report 16262772 (Version 1)
Quarter: 2019Q2

REPORT INFORMATION
  Report Type: Spontaneous
  Country: GB (occurrence: GB)
  Receive Date: 20190502
  Receipt Date: 20190502
  Transmission Date: 20190711
  Serious: Yes (Hospitalization)
  Sender: FDA-Public Use
  Company Number: GB-TEVA-2019-GB-1043812

PATIENT
  Age: 83 Year
  Sex: Male

DRUGS (14)
  1. RANITIDINE. [Concomitant]
     Active Substance: RANITIDINE
  2. RAMIPRIL. [Suspect]
     Active Substance: RAMIPRIL
     Indication: ESSENTIAL HYPERTENSION
     Dosage: 5 MILLIGRAM DAILY;
     Route: 048
     Dates: start: 20180101, end: 20190326
  3. TRIMETHOPRIM. [Concomitant]
     Active Substance: TRIMETHOPRIM
  4. MOXONIDINE [Suspect]
     Active Substance: MOXONIDINE
     Indication: ESSENTIAL HYPERTENSION
     Dosage: 400 MICROGRAM DAILY;
     Route: 048
     Dates: start: 20180101, end: 20190326
  5. RIVAROXABAN [Concomitant]
     Active Substance: RIVAROXABAN
  6. FINASTERIDE. [Concomitant]
     Active Substance: FINASTERIDE
  7. FERROUS FUMARATE [Concomitant]
     Active Substance: FERROUS FUMARATE
  8. AMLODIPINE [Suspect]
     Active Substance: AMLODIPINE BESYLATE
     Indication: ESSENTIAL HYPERTENSION
     Dosage: 10 MILLIGRAM DAILY; IN THE MORNING
     Route: 048
     Dates: start: 20180101, end: 20190326
  9. ZOPICLONE [Concomitant]
     Active Substance: ZOPICLONE
  10. MEMANTINE. [Concomitant]
     Active Substance: MEMANTINE
  11. CASSIA (SENNA ALEXANDRINA) [Concomitant]
     Active Substance: HERBALS\SENNOSIDES
  12. TEGRETOL XR [Concomitant]
     Active Substance: CARBAMAZEPINE
  13. DOCUSATE SODIUM. [Concomitant]
     Active Substance: DOCUSATE SODIUM
  14. SIMVASTATIN. [Concomitant]
     Active Substance: SIMVASTATIN

REACTIONS (2)
  - Fall [Recovered/Resolved]
  - Orthostatic hypotension [Unknown]

NARRATIVE: CASE EVENT DATE: 20190325
